FAERS Safety Report 21200079 (Version 2)
Quarter: 2022Q3

REPORT INFORMATION
  Report Type: Spontaneous
  Country: IN (occurrence: IN)
  Receive Date: 20220811
  Receipt Date: 20220824
  Transmission Date: 20221026
  Serious: Yes (Other)
  Sender: FDA-Public Use
  Company Number: IN-PFIZER INC-2019526976

PATIENT
  Age: 43 Year
  Sex: Female

DRUGS (15)
  1. PALBOCICLIB [Suspect]
     Active Substance: PALBOCICLIB
     Indication: Breast cancer metastatic
     Dosage: 125 MG, DAY 1-21/EVERY 28 DAYS
     Route: 048
     Dates: start: 20191120
  2. LETROZOLE [Concomitant]
     Active Substance: LETROZOLE
     Dosage: 2.5 MG, 1X/DAY
     Route: 048
  3. TRIPTORELIN PAMOATE [Concomitant]
     Active Substance: TRIPTORELIN PAMOATE
     Dosage: UNK, EVERY 3 MONTHS
  4. ZOLEDRONIC ACID [Concomitant]
     Active Substance: ZOLEDRONIC ACID
     Dosage: UNK, MONTHLY
  5. ULTRACET [Concomitant]
     Active Substance: ACETAMINOPHEN\TRAMADOL HYDROCHLORIDE
     Dosage: 1 DF, AS NEEDED, (1 TAB PO 8TH HOURLY AND SOS)
     Route: 048
  6. NEKSIUM [Concomitant]
     Dosage: 40 MG, 1X/DAY (ONCE DAILY (BBF))
     Route: 048
  7. DIGENE [ALUMINIUM HYDROXIDE;CARMELLOSE SODIUM;DIMETICONE;MAGNESIUM HYD [Concomitant]
     Dosage: 2 DF (2 TABS PO SOS AS EXPLAINED)
     Route: 048
  8. CALCIUM\CHOLECALCIFEROL [Concomitant]
     Active Substance: CALCIUM\CHOLECALCIFEROL
     Dosage: 500 MG, 1X/DAY (1 HOUR BEFORE OR 2 HOURS ALTER FOOD)
     Route: 048
  9. ZOLPIDEM TARTRATE [Concomitant]
     Active Substance: ZOLPIDEM TARTRATE
     Dosage: 5 MG (AT BED TIME TO CONTINUE)
     Route: 048
  10. ATORVASTATIN CALCIUM [Concomitant]
     Active Substance: ATORVASTATIN CALCIUM
     Dosage: 20 MG, 1X/DAY (AT BED TIME AFTER FOOD)
  11. ALLOPURINOL [Concomitant]
     Active Substance: ALLOPURINOL
     Dosage: 100 MG, 1X/DAY (100MG PO ONCE DAILY X 10 DAYS)
     Route: 048
  12. DAROLAC [Concomitant]
     Dosage: 1 DF, 3X/DAY
  13. PRALMORELIN [Concomitant]
     Active Substance: PRALMORELIN
  14. MINERALS\VITAMINS [Concomitant]
     Active Substance: MINERALS\VITAMINS
     Dosage: 1 DF, 1X/DAY
  15. DOLO [Concomitant]
     Dosage: 650 MG, AS NEEDED
     Route: 048

REACTIONS (14)
  - Tooth extraction [Unknown]
  - Sleep disorder [Unknown]
  - Back pain [Unknown]
  - Arthralgia [Unknown]
  - Anxiety [Unknown]
  - Insomnia [Unknown]
  - Neutrophil count decreased [Unknown]
  - Lipids abnormal [Unknown]
  - White blood cell count decreased [Unknown]
  - Pain [Unknown]
  - Headache [Unknown]
  - Fatigue [Unknown]
  - Product physical issue [Unknown]
  - Product prescribing error [Unknown]
